FAERS Safety Report 10656929 (Version 2)
Quarter: 2015Q1

REPORT INFORMATION
  Report Type: Spontaneous
  Country: FR (occurrence: None)
  Receive Date: 20141215
  Receipt Date: 20150121
  Transmission Date: 20150720
  Serious: Yes (Death, Congenital Anomaly)
  Sender: FDA-Public Use
  Company Number: FR2014GSK005133

PATIENT

DRUGS (1)
  1. DEROXAT (PAROXETINE HYDROCHLORIDE) UNKNOWN (LOT # UNKNOWN) [Suspect]
     Active Substance: PAROXETINE HYDROCHLORIDE
     Route: 064

REACTIONS (5)
  - Congenital anomaly [None]
  - Maternal drugs affecting foetus [None]
  - Stillbirth [None]
  - Congestive cardiomyopathy [None]
  - Hypertrophic cardiomyopathy [None]

NARRATIVE: CASE EVENT DATE: 201401
